FAERS Safety Report 7923414-1 (Version None)
Quarter: 2011Q4

REPORT INFORMATION
  Report Type: 
  Country: None (occurrence: None)
  Receive Date: 20111117
  Receipt Date: 20110202
  Transmission Date: 20120403
  Serious: No
  Sender: FDA-Public Use
  Company Number: US-AMGEN-USASP2011006640

PATIENT
  Age: 61 Year
  Sex: Male
  Weight: 104 kg

DRUGS (6)
  1. ENBREL [Suspect]
     Indication: PRODUCT USED FOR UNKNOWN INDICATION
     Dosage: 50 MG, QWK
  2. EFFEXOR [Concomitant]
     Dosage: 37.5 MG, UNK
  3. ZOLPIDEM [Concomitant]
     Dosage: 5 MG, UNK
  4. METHOTREXATE [Concomitant]
     Dosage: 2.5 MG, UNK
  5. PREDNISONE TAB [Concomitant]
     Dosage: 1 MG, UNK
  6. FOLIC ACID [Concomitant]
     Dosage: 1 MG, UNK

REACTIONS (1)
  - LYMPHADENOPATHY [None]
